FAERS Safety Report 16324280 (Version 1)
Quarter: 2019Q2

REPORT INFORMATION
  Report Type: Spontaneous
  Country: PT (occurrence: PT)
  Receive Date: 20190517
  Receipt Date: 20190517
  Transmission Date: 20190711
  Serious: Yes (Death, Hospitalization, Other)
  Sender: FDA-Public Use
  Company Number: PT-AUROBINDO-AUR-APL-2019-027553

PATIENT

DRUGS (10)
  1. COLISTINA [Suspect]
     Active Substance: COLISTIMETHATE SODIUM
     Indication: KLEBSIELLA INFECTION
     Dosage: UNK, FOLLOWED BY A MAINTENANCE DOSE OF 4 MU IV Q12H
     Route: 042
     Dates: start: 2017
  2. MEROPENEM. [Suspect]
     Active Substance: MEROPENEM
     Dosage: 2 GRAM, 3 TIMES A DAY, DOSE INCREAESD 2 G, Q8H IN A 3-H EXTENDED INFUSION
     Route: 065
     Dates: start: 2017
  3. CYCLOPHOSPHAMIDE. [Suspect]
     Active Substance: CYCLOPHOSPHAMIDE
     Indication: ACUTE LYMPHOCYTIC LEUKAEMIA
     Dosage: UNK
     Route: 065
     Dates: start: 2017
  4. COLISTINA [Suspect]
     Active Substance: COLISTIMETHATE SODIUM
     Dosage: UNK, 5 MU IV Q12H
     Route: 042
     Dates: start: 2017
  5. DEXAMETHASONE. [Suspect]
     Active Substance: DEXAMETHASONE
     Indication: ACUTE LYMPHOCYTIC LEUKAEMIA
     Dosage: UNK
     Route: 065
     Dates: start: 2017
  6. VINCRISTINE SULFATE. [Suspect]
     Active Substance: VINCRISTINE SULFATE
     Indication: ACUTE LYMPHOCYTIC LEUKAEMIA
     Dosage: UNK
     Route: 065
     Dates: start: 2017
  7. COLISTINA [Suspect]
     Active Substance: COLISTIMETHATE SODIUM
     Dosage: UNK, A LOADING DOSE OF 8 MU IV
     Route: 042
     Dates: start: 2017
  8. MEROPENEM. [Suspect]
     Active Substance: MEROPENEM
     Indication: KLEBSIELLA INFECTION
     Dosage: 1 GRAM, 3 TIMES A DAY, 1 G, Q8H
     Route: 065
     Dates: start: 2017
  9. DOXORUBICIN [Suspect]
     Active Substance: DOXORUBICIN
     Indication: ACUTE LYMPHOCYTIC LEUKAEMIA
     Dosage: UNK
     Route: 065
     Dates: start: 2017
  10. AMIKACIN SULFATE. [Suspect]
     Active Substance: AMIKACIN SULFATE
     Indication: KLEBSIELLA INFECTION
     Dosage: 1 GRAM, ONCE A DAY, 1 G, QD
     Route: 065
     Dates: start: 2017

REACTIONS (8)
  - Klebsiella infection [Fatal]
  - Neutropenia [Fatal]
  - Drug resistance [Fatal]
  - Multiple organ dysfunction syndrome [Fatal]
  - Neutropenic sepsis [Fatal]
  - Neutropenic colitis [Fatal]
  - Klebsiella bacteraemia [Fatal]
  - Osteomyelitis bacterial [Fatal]

NARRATIVE: CASE EVENT DATE: 2017
